FAERS Safety Report 4566898-1 (Version None)
Quarter: 2005Q1

REPORT INFORMATION
  Report Type: 
  Country: None (occurrence: None)
  Receive Date: 20050201
  Receipt Date: 20030409
  Transmission Date: 20050727
  Serious: Yes (Other)
  Sender: FDA-Public Use
  Company Number: US-BRISTOL-MYERS SQUIBB COMPANY-12241246

PATIENT
  Sex: Male

DRUGS (3)
  1. STADOL [Suspect]
     Indication: MIGRAINE
     Route: 045
     Dates: start: 19960701, end: 19970701
  2. METHYLPREDNISOLONE [Concomitant]
  3. OXYCODONE HCL + ACETAMINOPHEN [Concomitant]

REACTIONS (1)
  - DEPENDENCE [None]
